FAERS Safety Report 7823260-3 (Version None)
Quarter: 2011Q4

REPORT INFORMATION
  Report Type: 
  Country: None (occurrence: None)
  Receive Date: 20111013
  Receipt Date: 20110927
  Transmission Date: 20120403
  Serious: Yes (Death, Hospitalization, Other)
  Sender: FDA-Public Use
  Company Number: 2011MA014508

PATIENT
  Age: 18 Year
  Sex: Female

DRUGS (3)
  1. DIAZEPAM [Suspect]
     Indication: INTENTIONAL OVERDOSE
     Dosage: 60 MG;X1;
  2. DICLOFENAC SODIUM [Suspect]
     Indication: INTENTIONAL OVERDOSE
     Dosage: 600 MG;X1;PO
     Route: 048
  3. FERROUS SULFATE TAB [Suspect]
     Indication: INTENTIONAL OVERDOSE
     Dosage: 6 GM;X1

REACTIONS (20)
  - PULMONARY HYPERTENSION [None]
  - LIVER TRANSPLANT [None]
  - TOXICITY TO VARIOUS AGENTS [None]
  - GRAFT DYSFUNCTION [None]
  - SEPTIC SHOCK [None]
  - BRAIN DEATH [None]
  - PULMONARY TOXICITY [None]
  - INTRACRANIAL PRESSURE INCREASED [None]
  - MULTIPLE DRUG OVERDOSE INTENTIONAL [None]
  - ENCEPHALOPATHY [None]
  - MULTI-ORGAN DISORDER [None]
  - GRAFT ISCHAEMIA [None]
  - HEPATIC NECROSIS [None]
  - PERFORATION BILE DUCT [None]
  - BRONCHOPULMONARY ASPERGILLOSIS [None]
  - RENAL FAILURE [None]
  - ASPERGILLOSIS [None]
  - ACUTE RESPIRATORY DISTRESS SYNDROME [None]
  - RIGHT VENTRICULAR DYSFUNCTION [None]
  - COMPLICATIONS OF TRANSPLANTED LIVER [None]
